FAERS Safety Report 7343558-5 (Version None)
Quarter: 2011Q1

REPORT INFORMATION
  Report Type: 
  Country: None (occurrence: None)
  Receive Date: 20110310
  Receipt Date: 20100514
  Transmission Date: 20110831
  Serious: No
  Sender: FDA-Public Use
  Company Number: A0859745A

PATIENT
  Age: 39 Year
  Sex: Male

DRUGS (2)
  1. NICOTINE POLACRILEX [Suspect]
     Indication: TOBACCO USER
     Route: 048
     Dates: start: 20100423, end: 20100506
  2. NICODERM CQ [Suspect]
     Indication: TOBACCO USER
     Route: 062

REACTIONS (7)
  - GINGIVAL PAIN [None]
  - PARAESTHESIA ORAL [None]
  - DRUG INEFFECTIVE [None]
  - TOOTHACHE [None]
  - GLOSSODYNIA [None]
  - APHTHOUS STOMATITIS [None]
  - DRUG ADMINISTRATION ERROR [None]
